FAERS Safety Report 15362323 (Version 9)
Quarter: 2020Q2

REPORT INFORMATION
  Report Type: Report from Study
  Country: US (occurrence: US)
  Receive Date: 20180907
  Receipt Date: 20200617
  Transmission Date: 20200713
  Serious: Yes (Hospitalization, Other)
  Sender: FDA-Public Use
  Company Number: US-SA-2018SA133032

PATIENT

DRUGS (3)
  1. ALEMTUZUMAB [Suspect]
     Active Substance: ALEMTUZUMAB
     Indication: MULTIPLE SCLEROSIS
     Dosage: 12 MG, QD
     Route: 041
     Dates: start: 20180507, end: 20180511
  2. ACROGEL [Concomitant]
     Dosage: UNK
     Route: 065
  3. AXCER [Concomitant]
     Active Substance: TICAGRELOR
     Dosage: UNK
     Route: 065

REACTIONS (49)
  - Autoimmune disorder [Unknown]
  - White blood cell count increased [Not Recovered/Not Resolved]
  - Hypotension [Recovered/Resolved]
  - Blood pressure decreased [Recovered/Resolved]
  - Throat clearing [Not Recovered/Not Resolved]
  - Unevaluable event [Recovered/Resolved]
  - Balance disorder [Not Recovered/Not Resolved]
  - Fatigue [Not Recovered/Not Resolved]
  - Dyspnoea [Recovered/Resolved]
  - Heart rate increased [Recovered/Resolved]
  - Lip blister [Unknown]
  - Skin induration [Unknown]
  - Stress [Unknown]
  - Speech disorder [Recovering/Resolving]
  - Muscle tightness [Not Recovered/Not Resolved]
  - Impaired gastric emptying [Unknown]
  - Tremor [Not Recovered/Not Resolved]
  - Oxygen saturation decreased [Recovered/Resolved]
  - Alopecia [Not Recovered/Not Resolved]
  - Skin lesion [Unknown]
  - Pain [Not Recovered/Not Resolved]
  - Speech disorder [Not Recovered/Not Resolved]
  - Hypophagia [Recovered/Resolved]
  - Back pain [Not Recovered/Not Resolved]
  - Chest discomfort [Recovered/Resolved]
  - Abdominal discomfort [Unknown]
  - Thyroid function test abnormal [Unknown]
  - Multiple sclerosis relapse [Recovered/Resolved]
  - Intervertebral disc degeneration [Not Recovered/Not Resolved]
  - Hepatic enzyme increased [Not Recovered/Not Resolved]
  - Drug monitoring procedure not performed [Unknown]
  - Basedow^s disease [Recovering/Resolving]
  - Musculoskeletal chest pain [Not Recovered/Not Resolved]
  - Intervertebral disc disorder [Not Recovered/Not Resolved]
  - Pruritus [Not Recovered/Not Resolved]
  - Fatigue [Unknown]
  - Multiple sclerosis relapse [Not Recovered/Not Resolved]
  - Tachycardia [Recovered/Resolved]
  - Chest pain [Recovered/Resolved]
  - Pruritus [Unknown]
  - Memory impairment [Not Recovered/Not Resolved]
  - Abdominal discomfort [Recovered/Resolved]
  - Muscle spasms [Recovered/Resolved]
  - Pyrexia [Recovered/Resolved]
  - Eye pain [Recovering/Resolving]
  - Laboratory test abnormal [Unknown]
  - Tremor [Unknown]
  - Bone pain [Not Recovered/Not Resolved]
  - Headache [Unknown]

NARRATIVE: CASE EVENT DATE: 2018
